FAERS Safety Report 4872946-1 (Version None)
Quarter: 2006Q1

REPORT INFORMATION
  Report Type: 
  Country: None (occurrence: None)
  Receive Date: 20060105
  Receipt Date: 20050404
  Transmission Date: 20060701
  Serious: Yes (Death)
  Sender: FDA-Public Use
  Company Number: US-BRISTOL-MYERS SQUIBB COMPANY-12922621

PATIENT
  Sex: Male

DRUGS (1)
  1. SERZONE [Suspect]
     Route: 048
     Dates: start: 19970725, end: 19990908

REACTIONS (1)
  - COMPLETED SUICIDE [None]
